FAERS Safety Report 20652979 (Version 1)
Quarter: 2022Q1

REPORT INFORMATION
  Report Type: Spontaneous
  Country: DE (occurrence: DE)
  Receive Date: 20220330
  Receipt Date: 20220330
  Transmission Date: 20220424
  Serious: Yes (Other)
  Sender: FDA-Public Use
  Company Number: DE-UCBSA-2022018188

PATIENT
  Age: 83 Year

DRUGS (2)
  1. LACOSAMIDE [Suspect]
     Active Substance: LACOSAMIDE
     Indication: Epilepsy
     Dosage: 100 MILLIGRAM, 2X/DAY (BID)
     Dates: start: 202010
  2. CARBAMAZEPINE [Concomitant]
     Active Substance: CARBAMAZEPINE
     Indication: Product used for unknown indication

REACTIONS (4)
  - Seizure [Unknown]
  - Focal dyscognitive seizures [Unknown]
  - Generalised tonic-clonic seizure [Recovered/Resolved]
  - Hyponatraemia [Unknown]

NARRATIVE: CASE EVENT DATE: 20201101
